FAERS Safety Report 12689661 (Version 1)
Quarter: 2016Q3

REPORT INFORMATION
  Report Type: Report from Study
  Country: NL (occurrence: NL)
  Receive Date: 20160826
  Receipt Date: 20160826
  Transmission Date: 20161109
  Serious: Yes (Hospitalization)
  Sender: FDA-Public Use
  Company Number: NL-AMGEN-NLDSL2016109522

PATIENT
  Age: 84 Year
  Sex: Female

DRUGS (1)
  1. ARANESP [Suspect]
     Active Substance: DARBEPOETIN ALFA
     Indication: NEPHROGENIC ANAEMIA
     Dosage: 20 MCG (40MCG/ML 0.5ML), Q4WK
     Route: 058

REACTIONS (3)
  - Intentional product misuse [Unknown]
  - Echocardiogram [Unknown]
  - Laboratory test [Unknown]

NARRATIVE: CASE EVENT DATE: 20160818
